FAERS Safety Report 13077754 (Version 2)
Quarter: 2017Q1

REPORT INFORMATION
  Report Type: Spontaneous
  Country: US (occurrence: US)
  Receive Date: 20170101
  Receipt Date: 20170201
  Transmission Date: 20170428
  Serious: Yes (Hospitalization)
  Sender: FDA-Public Use
  Company Number: US-MALLINCKRODT-T201606721

PATIENT
  Sex: Male

DRUGS (5)
  1. LIORESAL [Concomitant]
     Active Substance: BACLOFEN
     Dosage: 402 ?G, QD
  2. COUMADIN [Concomitant]
     Active Substance: WARFARIN SODIUM
  3. GABLOFEN [Suspect]
     Active Substance: BACLOFEN
     Indication: MUSCLE SPASTICITY
     Dosage: 402.4 MCG/DAY/ 250 MCG/DAY
     Route: 037
     Dates: start: 20110713
  4. LIORESAL [Concomitant]
     Active Substance: BACLOFEN
     Dosage: 250 ?G, QD
  5. GABLOFEN [Suspect]
     Active Substance: BACLOFEN
     Indication: CEREBROVASCULAR ACCIDENT

REACTIONS (5)
  - Feeling abnormal [Unknown]
  - Muscle spasticity [Unknown]
  - Device issue [Unknown]
  - Drug withdrawal syndrome [Unknown]
  - Pruritus [Unknown]
